FAERS Safety Report 9807365 (Version 1)
Quarter: 2014Q1

REPORT INFORMATION
  Report Type: Report from Study
  Country: US (occurrence: US)
  Receive Date: 20140110
  Receipt Date: 20140110
  Transmission Date: 20141002
  Serious: Yes (Death)
  Sender: FDA-Public Use
  Company Number: US-ROCHE-1331952

PATIENT
  Age: 60 Year
  Sex: Female

DRUGS (5)
  1. AVASTIN [Suspect]
     Indication: COLON CANCER
     Route: 042
  2. AVASTIN [Suspect]
     Indication: LYMPHOMA
  3. AVASTIN [Suspect]
     Indication: METASTASES TO LIVER
  4. DEXAMETHASONE PHOSPHATE [Concomitant]
     Route: 042
  5. OXALIPLATIN [Concomitant]
     Route: 042

REACTIONS (1)
  - Death [Fatal]
